FAERS Safety Report 7917532-1 (Version None)
Quarter: 2011Q4

REPORT INFORMATION
  Report Type: 
  Country: None (occurrence: None)
  Receive Date: 20111116
  Receipt Date: 20111111
  Transmission Date: 20120403
  Serious: Yes (Hospitalization, Congenital Anomaly, Other)
  Sender: FDA-Public Use
  Company Number: US-PFIZER INC-2011151101

PATIENT
  Sex: Male
  Weight: 2.695 kg

DRUGS (6)
  1. ZOLOFT [Suspect]
     Indication: DEPRESSION
     Dosage: AT NIGHT
     Route: 064
  2. ZOLOFT [Suspect]
     Indication: BIPOLAR DISORDER
  3. TEGRETOL [Concomitant]
     Indication: BIPOLAR DISORDER
     Route: 064
  4. CLONOPIN [Concomitant]
     Indication: BIPOLAR DISORDER
     Route: 064
  5. ACETAMINOPHEN [Concomitant]
  6. LITHIUM [Concomitant]
     Route: 064

REACTIONS (11)
  - DOUBLE OUTLET RIGHT VENTRICLE [None]
  - PULMONARY ARTERY ATRESIA [None]
  - PATENT DUCTUS ARTERIOSUS [None]
  - DILATATION VENTRICULAR [None]
  - BUNDLE BRANCH BLOCK RIGHT [None]
  - MATERNAL EXPOSURE TIMING UNSPECIFIED [None]
  - VENTRICULAR SEPTAL DEFECT [None]
  - TRICUSPID VALVE INCOMPETENCE [None]
  - FALLOT'S TETRALOGY [None]
  - HYPOSPADIAS [None]
  - ATRIAL SEPTAL DEFECT [None]
